FAERS Safety Report 20068707 (Version 1)
Quarter: 2021Q4

REPORT INFORMATION
  Report Type: Spontaneous
  Country: BG (occurrence: BG)
  Receive Date: 20211115
  Receipt Date: 20211115
  Transmission Date: 20220303
  Serious: Yes (Other)
  Sender: FDA-Public Use
  Company Number: BG-ABBVIE-21K-022-4157304-00

PATIENT
  Age: 45 Year
  Sex: Male
  Weight: 75 kg

DRUGS (3)
  1. HUMIRA [Suspect]
     Active Substance: ADALIMUMAB
     Indication: Crohn^s disease
     Route: 058
     Dates: start: 201610, end: 202110
  2. URSODIOL [Concomitant]
     Active Substance: URSODIOL
     Indication: Crohn^s disease
     Dosage: FREQUENCY; 2X1
  3. FENOFIBRATE [Concomitant]
     Active Substance: FENOFIBRATE
     Indication: Crohn^s disease
     Dosage: FREQUENCY: X1

REACTIONS (2)
  - Pityriasis lichenoides et varioliformis acuta [Not Recovered/Not Resolved]
  - Epstein-Barr virus infection [Not Recovered/Not Resolved]

NARRATIVE: CASE EVENT DATE: 20210801
